FAERS Safety Report 5863974-8 (Version None)
Quarter: 2008Q3

REPORT INFORMATION
  Report Type: 
  Country: None (occurrence: None)
  Receive Date: 20080829
  Receipt Date: 20080822
  Transmission Date: 20090109
  Serious: Yes (Other)
  Sender: FDA-Public Use
  Company Number: PHHY2008DE14220

PATIENT
  Sex: Male
  Weight: 84 kg

DRUGS (5)
  1. RASILEZ [Suspect]
     Indication: HYPERTENSION
     Dosage: 150 MG, UNK
     Dates: start: 20080206, end: 20080313
  2. RASILEZ [Suspect]
     Dosage: 300 MG, UNK
     Dates: start: 20080314, end: 20080708
  3. CONTRAST MEDIA [Suspect]
  4. ASS ^CT-ARZNEIMITTEL^ [Concomitant]
     Indication: THROMBOSIS PROPHYLAXIS
     Dosage: 100 MG, UNK
  5. TORSEMIDE [Concomitant]
     Indication: HYPERTENSION
     Dosage: 20 MG, UNK

REACTIONS (4)
  - BLOOD CREATININE INCREASED [None]
  - HAEMOGLOBIN DECREASED [None]
  - RENAL ARTERY STENOSIS [None]
  - STENT PLACEMENT [None]
